FAERS Safety Report 7133184-5 (Version None)
Quarter: 2010Q4

REPORT INFORMATION
  Report Type: 
  Country: None (occurrence: None)
  Receive Date: 20101202
  Receipt Date: 20101115
  Transmission Date: 20110411
  Serious: Yes (Other)
  Sender: FDA-Public Use
  Company Number: US-PFIZER INC-US-WYE-H18190810

PATIENT
  Sex: Female
  Weight: 77.1 kg

DRUGS (6)
  1. EFFEXOR XR [Suspect]
     Indication: DEPRESSION
     Dosage: 225 MG, UNK
  2. EFFEXOR XR [Suspect]
     Indication: SUICIDAL IDEATION
     Dosage: 300 MG, 1X/DAY
     Dates: start: 20091203
  3. ZOLOFT [Suspect]
     Indication: DEPRESSION
     Dosage: UNKNOWN DOSE
  4. ZOLOFT [Suspect]
     Indication: SUICIDAL IDEATION
  5. VITAMINS [Concomitant]
  6. CILEST [Concomitant]
     Indication: MENORRHAGIA
     Dosage: UNK

REACTIONS (12)
  - ASTHENIA [None]
  - DEPRESSED MOOD [None]
  - DEPRESSION [None]
  - DRUG EFFECT DECREASED [None]
  - HYPERSOMNIA [None]
  - MENSTRUATION IRREGULAR [None]
  - MUSCLE SPASMS [None]
  - PHOTOPHOBIA [None]
  - SINUS HEADACHE [None]
  - SUICIDAL IDEATION [None]
  - VISUAL IMPAIRMENT [None]
  - WEIGHT INCREASED [None]
